FAERS Safety Report 18518149 (Version 1)
Quarter: 2020Q4

REPORT INFORMATION
  Report Type: Spontaneous
  Country: DE (occurrence: DE)
  Receive Date: 20201118
  Receipt Date: 20201118
  Transmission Date: 20210114
  Serious: Yes (Hospitalization)
  Sender: FDA-Public Use
  Company Number: DE-MYLANLABS-2020M1094768

PATIENT
  Age: 79 Year
  Sex: Male

DRUGS (12)
  1. RAMIPRIL. [Concomitant]
     Active Substance: RAMIPRIL
     Dosage: 5 MG, 1-0-0-0, TABLETTEN
  2. EPLERENONA [Concomitant]
     Active Substance: EPLERENONE
     Dosage: 50 MG, 1-0-0-0, TABLETTEN
     Route: 048
  3. INSULIN ASPART [Concomitant]
     Active Substance: INSULIN ASPART
     Dosage: NK MG, NACH SCHEMA, AMPULLEN
     Route: 058
  4. TORASEMID [Concomitant]
     Active Substance: TORSEMIDE
     Dosage: 10 MG, 1-0-0-0, TABLETTEN
     Route: 048
  5. ISMN [Concomitant]
     Active Substance: ISOSORBIDE MONONITRATE
     Dosage: 20 MG, 1-0-0-0
     Route: 048
  6. METOPROLOL. [Suspect]
     Active Substance: METOPROLOL
     Indication: PRODUCT USED FOR UNKNOWN INDICATION
     Dosage: 95 MG, 1-0-0.5-0, RETARD-TABLETTEN
     Route: 048
  7. PHENPROCOUMON [Concomitant]
     Active Substance: PHENPROCOUMON
     Dosage: 3 MG, NACH WERT, TABLETTEN
     Route: 048
  8. RANOLAZINE. [Concomitant]
     Active Substance: RANOLAZINE
     Dosage: 500 MG, 1-0-1-0, RETARD-TABLETTEN
     Route: 048
  9. INSULIN GLARGINE [Concomitant]
     Active Substance: INSULIN GLARGINE
     Dosage: 24 IE, 0-0-0-1, AMPULLEN
     Route: 058
  10. PANTOPRAZOL                        /01263201/ [Concomitant]
     Active Substance: PANTOPRAZOLE
     Dosage: 40 MG, 1-0-0-0, TABLETTEN
     Route: 048
  11. ATORVASTATIN [Concomitant]
     Active Substance: ATORVASTATIN
     Dosage: 40 MG, 0-0-1-0, TABLETTEN
     Route: 048
  12. MOLSIDOMIN [Concomitant]
     Active Substance: MOLSIDOMINE
     Dosage: 8 MG, 0-0-1-0, TABLETTEN
     Route: 048

REACTIONS (4)
  - Musculoskeletal pain [Unknown]
  - Pain [Unknown]
  - Condition aggravated [Unknown]
  - Pain in extremity [Unknown]
